FAERS Safety Report 9847686 (Version 2)
Quarter: 2014Q1

REPORT INFORMATION
  Report Type: Spontaneous
  Country: US (occurrence: US)
  Receive Date: 20140128
  Receipt Date: 20140203
  Transmission Date: 20141002
  Serious: Yes (Hospitalization)
  Sender: FDA-Public Use
  Company Number: US-BIOGENIDEC-2014BI005199

PATIENT
  Age: 76 Year
  Sex: Male

DRUGS (1)
  1. TYSABRI [Suspect]
     Indication: MULTIPLE SCLEROSIS
     Route: 042
     Dates: start: 20111027, end: 20130311

REACTIONS (5)
  - Neoplasm malignant [Unknown]
  - Pneumonia [Recovered/Resolved]
  - Endoscopic retrograde cholangiopancreatography [Unknown]
  - Haemorrhage [Unknown]
  - Endotracheal intubation [Unknown]
